FAERS Safety Report 7264615-8 (Version None)
Quarter: 2011Q1

REPORT INFORMATION
  Report Type: 
  Country: None (occurrence: None)
  Receive Date: 20110119
  Receipt Date: 20110112
  Transmission Date: 20110831
  Serious: Yes (Life-Threatening)
  Sender: FDA-Public Use
  Company Number: 019657

PATIENT
  Sex: Female
  Weight: 58.1 kg

DRUGS (5)
  1. METHOTREXATE [Concomitant]
  2. LIPITOR [Concomitant]
  3. PYRIDOXINE [Concomitant]
  4. CERTOLIZUMAB PEGOL [Suspect]
     Indication: RHEUMATOID ARTHRITIS
     Dosage: SEE IMAGE
     Route: 058
     Dates: start: 20100204, end: 20100830
  5. FOLIC ACID [Concomitant]

REACTIONS (32)
  - HYPERLIPIDAEMIA [None]
  - WEIGHT DECREASED [None]
  - APHTHOUS STOMATITIS [None]
  - WEGENER'S GRANULOMATOSIS [None]
  - TUBERCULOSIS [None]
  - RHEUMATOID ARTHRITIS [None]
  - HAEMOGLOBIN DECREASED [None]
  - PROTHROMBIN TIME PROLONGED [None]
  - RHEUMATOID NODULE [None]
  - TUBERCULIN TEST POSITIVE [None]
  - BLOOD SODIUM DECREASED [None]
  - INTERNATIONAL NORMALISED RATIO DECREASED [None]
  - SPUTUM CULTURE POSITIVE [None]
  - HILAR LYMPHADENOPATHY [None]
  - METASTASES TO LIVER [None]
  - GROIN PAIN [None]
  - PNEUMOTHORAX [None]
  - ACTIVATED PARTIAL THROMBOPLASTIN TIME PROLONGED [None]
  - ARTHRALGIA [None]
  - PNEUMONIA [None]
  - ABDOMINAL PAIN UPPER [None]
  - DECREASED APPETITE [None]
  - CONDITION AGGRAVATED [None]
  - HYPOTENSION [None]
  - BLOOD COUNT ABNORMAL [None]
  - LUNG NEOPLASM [None]
  - PULMONARY GRANULOMA [None]
  - HAEMANGIOMA OF LIVER [None]
  - BLOOD ALKALINE PHOSPHATASE INCREASED [None]
  - SEPSIS [None]
  - ACID FAST BACILLI INFECTION [None]
  - SARCOIDOSIS [None]
